FAERS Safety Report 9058458 (Version 1)
Quarter: 2013Q1

REPORT INFORMATION
  Report Type: Spontaneous
  Country: US (occurrence: US)
  Receive Date: 20130211
  Receipt Date: 20130211
  Transmission Date: 20140127
  Serious: Yes (Other)
  Sender: FDA-Public Use
  Company Number: US-JNJFOC-20130104785

PATIENT
  Age: 2 Year
  Sex: Female
  Weight: 14.52 kg

DRUGS (1)
  1. CHILDREN^S BENADRYL ALLERGY CHERRY LIQUID [Suspect]
     Indication: MULTIPLE ALLERGIES
     Route: 048
     Dates: start: 20130106, end: 20130106

REACTIONS (9)
  - Hallucination [Recovered/Resolved]
  - Hypertension [Recovered/Resolved]
  - Accidental overdose [Recovered/Resolved]
  - Hypoaesthesia [Recovered/Resolved]
  - Irritability [Recovered/Resolved]
  - Psychomotor hyperactivity [Recovered/Resolved]
  - Skin irritation [Recovered/Resolved]
  - Failure of child resistant mechanism for pharmaceutical product [Unknown]
  - Accidental exposure to product by child [Unknown]
